FAERS Safety Report 22614876 (Version 2)
Quarter: 2023Q4

REPORT INFORMATION
  Report Type: Spontaneous
  Country: DE (occurrence: DE)
  Receive Date: 20230619
  Receipt Date: 20231214
  Transmission Date: 20240110
  Serious: Yes (Hospitalization, Other)
  Sender: FDA-Public Use
  Company Number: DE-UCBSA-2023010575

PATIENT
  Sex: Male

DRUGS (4)
  1. COSENTYX [Suspect]
     Active Substance: SECUKINUMAB
     Indication: Psoriatic arthropathy
     Dosage: 300 MG
     Route: 065
     Dates: start: 20201126
  2. COSENTYX [Suspect]
     Active Substance: SECUKINUMAB
     Dosage: 150 MG, Q4W
     Route: 065
     Dates: start: 20210115, end: 20210729
  3. CERTOLIZUMAB PEGOL [Suspect]
     Active Substance: CERTOLIZUMAB PEGOL
     Indication: Psoriatic arthropathy
     Dosage: 200 MG, BIW (EV 2 WEEKS(QOW))
     Route: 065
     Dates: start: 20210804, end: 20220616
  4. CERTOLIZUMAB PEGOL [Suspect]
     Active Substance: CERTOLIZUMAB PEGOL
     Dosage: 200 MG, BIW (EV 2 WEEKS(QOW))
     Route: 065
     Dates: start: 20220717

REACTIONS (3)
  - Blood loss anaemia [Unknown]
  - Gastrointestinal vascular malformation haemorrhagic [Not Recovered/Not Resolved]
  - Peripheral arterial occlusive disease [Recovered/Resolved]

NARRATIVE: CASE EVENT DATE: 20220506
